FAERS Safety Report 7213925-9 (Version None)
Quarter: 2011Q1

REPORT INFORMATION
  Report Type: 
  Country: None (occurrence: None)
  Receive Date: 20110106
  Receipt Date: 20101229
  Transmission Date: 20110831
  Serious: Yes (Hospitalization)
  Sender: FDA-Public Use
  Company Number: US-ABBOTT-10P-163-0694350-00

PATIENT
  Sex: Male
  Weight: 112.59 kg

DRUGS (8)
  1. ASPIRIN [Concomitant]
     Indication: PRODUCT USED FOR UNKNOWN INDICATION
  2. NIASPAN [Suspect]
     Indication: BLOOD CHOLESTEROL INCREASED
     Dates: start: 20080101, end: 20101122
  3. NIASPAN [Suspect]
     Indication: CORONARY ARTERY BYPASS
  4. AMLODIPINE [Concomitant]
     Indication: HYPERTENSION
  5. METFORMIN HCL [Concomitant]
     Indication: DIABETES MELLITUS
  6. NIASPAN [Suspect]
     Indication: INVESTIGATION ABNORMAL
     Dosage: AT BEDTIME
  7. LISINOPRIL [Concomitant]
     Indication: HYPERTENSION
  8. METOPROLOL [Concomitant]
     Indication: CARDIAC DISORDER

REACTIONS (6)
  - CHEST DISCOMFORT [None]
  - CORONARY ARTERY OCCLUSION [None]
  - ANGINA PECTORIS [None]
  - UNEVALUABLE EVENT [None]
  - PNEUMONIA [None]
  - HOT FLUSH [None]
